FAERS Safety Report 25369991 (Version 2)
Quarter: 2025Q2

REPORT INFORMATION
  Report Type: Spontaneous
  Country: US (occurrence: US)
  Receive Date: 20250528
  Receipt Date: 20250623
  Transmission Date: 20250717
  Serious: Yes (Other)
  Sender: MYLAN
  Company Number: US-MYLANLABS-2025M1044058

PATIENT
  Age: 34 Year
  Sex: Male
  Weight: 79.38 kg

DRUGS (8)
  1. BREYNA [Suspect]
     Active Substance: BUDESONIDE\FORMOTEROL FUMARATE
     Indication: Wheezing
     Dosage: 160/9 MICROGRAM, BID (INHALE 2 PUFFS BY MOUTH EVERY MORNING AND EVERY NIGHT AT BEDTIME, RINSE MOUTH WITH WATER AFTER USE TO REDUCE AFTERTASTE)
     Dates: start: 20250520
  2. BREYNA [Suspect]
     Active Substance: BUDESONIDE\FORMOTEROL FUMARATE
     Indication: Asthma
     Dosage: 160/9 MICROGRAM, BID (INHALE 2 PUFFS BY MOUTH EVERY MORNING AND EVERY NIGHT AT BEDTIME, RINSE MOUTH WITH WATER AFTER USE TO REDUCE AFTERTASTE)
     Route: 055
     Dates: start: 20250520
  3. BREYNA [Suspect]
     Active Substance: BUDESONIDE\FORMOTEROL FUMARATE
     Dosage: 160/9 MICROGRAM, BID (INHALE 2 PUFFS BY MOUTH EVERY MORNING AND EVERY NIGHT AT BEDTIME, RINSE MOUTH WITH WATER AFTER USE TO REDUCE AFTERTASTE)
     Route: 055
     Dates: start: 20250520
  4. BREYNA [Suspect]
     Active Substance: BUDESONIDE\FORMOTEROL FUMARATE
     Dosage: 160/9 MICROGRAM, BID (INHALE 2 PUFFS BY MOUTH EVERY MORNING AND EVERY NIGHT AT BEDTIME, RINSE MOUTH WITH WATER AFTER USE TO REDUCE AFTERTASTE)
     Dates: start: 20250520
  5. ALBUTEROL [Concomitant]
     Active Substance: ALBUTEROL
     Indication: Wheezing
  6. ALBUTEROL [Concomitant]
     Active Substance: ALBUTEROL
     Route: 065
  7. ALBUTEROL [Concomitant]
     Active Substance: ALBUTEROL
     Route: 065
  8. ALBUTEROL [Concomitant]
     Active Substance: ALBUTEROL

REACTIONS (5)
  - Arrhythmia [Recovered/Resolved]
  - Dyspnoea [Recovered/Resolved]
  - Chest discomfort [Recovered/Resolved]
  - Palpitations [Recovered/Resolved]
  - Dizziness [Recovered/Resolved]

NARRATIVE: CASE EVENT DATE: 20250520
